FAERS Safety Report 5521980-7 (Version None)
Quarter: 2007Q4

REPORT INFORMATION
  Report Type: 
  Country: None (occurrence: None)
  Receive Date: 20071120
  Receipt Date: 20070724
  Transmission Date: 20080405
  Serious: No
  Sender: FDA-Public Use
  Company Number: US-BRISTOL-MYERS SQUIBB COMPANY-13855432

PATIENT
  Age: 85 Year
  Sex: Male
  Weight: 88 kg

DRUGS (9)
  1. AVALIDE [Suspect]
     Indication: BLOOD PRESSURE INCREASED
     Dosage: DOSE DECREASED TO 150/12.5MG
     Route: 048
     Dates: start: 20070616
  2. METOPROLOL TARTRATE [Concomitant]
  3. CLONIDINE HCL [Concomitant]
  4. PLAVIX [Concomitant]
  5. ZOCOR [Concomitant]
  6. NEXIUM [Concomitant]
  7. COSOPT [Concomitant]
  8. XALATAN [Concomitant]
  9. ALPHAGAN [Concomitant]

REACTIONS (1)
  - DIZZINESS [None]
